FAERS Safety Report 23693763 (Version 1)
Quarter: 2024Q2

REPORT INFORMATION
  Report Type: Report from Study
  Country: US (occurrence: US)
  Receive Date: 20240401
  Receipt Date: 20240401
  Transmission Date: 20240716
  Serious: Yes (Death, Hospitalization)
  Sender: FDA-Public Use
  Company Number: US-MIRATI-MT2024PM06323

PATIENT
  Sex: Female
  Weight: 37.642 kg

DRUGS (19)
  1. KRAZATI [Suspect]
     Active Substance: ADAGRASIB
     Indication: Lung neoplasm malignant
     Dosage: 600 MG, BID
     Route: 048
     Dates: start: 20240319
  2. ALBUTEROL [Concomitant]
     Active Substance: ALBUTEROL
  3. AMBIEN [Concomitant]
     Active Substance: ZOLPIDEM TARTRATE
  4. ASPIRIN [Concomitant]
     Active Substance: ASPIRIN
  5. BREO ELLIPTA [Concomitant]
     Active Substance: FLUTICASONE FUROATE\VILANTEROL TRIFENATATE
  6. ENTRESTO [Concomitant]
     Active Substance: SACUBITRIL\VALSARTAN
  7. ALBUTEROL\IPRATROPIUM [Concomitant]
     Active Substance: ALBUTEROL\IPRATROPIUM
  8. LACTULOSE [Concomitant]
     Active Substance: LACTULOSE
  9. METOPROLOL [Concomitant]
     Active Substance: METOPROLOL
  10. MORPHINE [Concomitant]
     Active Substance: MORPHINE
  11. NORCO [Concomitant]
     Active Substance: ACETAMINOPHEN\HYDROCODONE BITARTRATE
  12. NYSTATIN [Concomitant]
     Active Substance: NYSTATIN
  13. OMEPRAZOLE [Concomitant]
     Active Substance: OMEPRAZOLE
  14. ONDANSETRON [Concomitant]
     Active Substance: ONDANSETRON
  15. PREDNISONE [Concomitant]
     Active Substance: PREDNISONE
  16. PROCHLORPERAZINE [Concomitant]
     Active Substance: PROCHLORPERAZINE
  17. ROSUVASTATIN [Concomitant]
     Active Substance: ROSUVASTATIN
  18. SPIRIVA [Concomitant]
     Active Substance: TIOTROPIUM BROMIDE MONOHYDRATE
  19. ZOLPIDEM [Concomitant]
     Active Substance: ZOLPIDEM TARTRATE

REACTIONS (2)
  - Death [Fatal]
  - Renal failure [Unknown]

NARRATIVE: CASE EVENT DATE: 20240328
